FAERS Safety Report 18042029 (Version 1)
Quarter: 2020Q3

REPORT INFORMATION
  Report Type: Spontaneous
  Country: CA (occurrence: CA)
  Receive Date: 20200720
  Receipt Date: 20200720
  Transmission Date: 20201103
  Serious: Yes (Hospitalization, Other)
  Sender: FDA-Public Use
  Company Number: CA-TEVA-2020-CA-1802861

PATIENT
  Age: 5 Year
  Sex: Male

DRUGS (3)
  1. CLONIDINE. [Suspect]
     Active Substance: CLONIDINE
     Indication: SOMATOTROPIN STIMULATION TEST
     Route: 048
  2. L?ARGININE [Suspect]
     Active Substance: ARGININE
     Indication: SOMATOTROPIN STIMULATION TEST
     Dosage: 0.5G/KG IN 10% SODIUM CHLORIDE SOLUTION INFUSED OVER 30 MINUTES
     Route: 041
  3. NORMAL SALINE [Concomitant]
     Active Substance: SODIUM CHLORIDE
     Indication: SOMATOTROPIN STIMULATION TEST
     Dosage: INFUSED OVER 30MINUTES
     Route: 041

REACTIONS (5)
  - Haematuria [Recovered/Resolved]
  - Hypotension [Unknown]
  - Myalgia [Recovered/Resolved]
  - Weight bearing difficulty [Recovered/Resolved]
  - Gait disturbance [Recovered/Resolved]
